FAERS Safety Report 20570887 (Version 1)
Quarter: 2022Q1

REPORT INFORMATION
  Report Type: Spontaneous
  Country: BR (occurrence: BR)
  Receive Date: 20220309
  Receipt Date: 20220309
  Transmission Date: 20220423
  Serious: Yes (Hospitalization)
  Sender: FDA-Public Use
  Company Number: BR-MACLEODS PHARMACEUTICALS US LTD-MAC2022034677

PATIENT

DRUGS (3)
  1. TENOFOVIR [Suspect]
     Active Substance: TENOFOVIR
     Indication: HIV test positive
     Dosage: UNK
     Route: 065
  2. LAMIVUDINE [Concomitant]
     Active Substance: LAMIVUDINE
     Indication: HIV test positive
     Dosage: UNK
     Route: 065
  3. EFAVIRENZ [Concomitant]
     Active Substance: EFAVIRENZ
     Indication: HIV test positive
     Dosage: UNK
     Route: 065

REACTIONS (8)
  - Nephropathy toxic [Unknown]
  - Musculoskeletal toxicity [Unknown]
  - Vitamin D deficiency [Unknown]
  - Bone density decreased [Unknown]
  - Hyperparathyroidism secondary [Recovering/Resolving]
  - Fracture [Unknown]
  - Acute kidney injury [Unknown]
  - Fanconi syndrome [Unknown]
